FAERS Safety Report 15612453 (Version 1)
Quarter: 2018Q4

REPORT INFORMATION
  Report Type: Spontaneous
  Country: US (occurrence: US)
  Receive Date: 20181113
  Receipt Date: 20181113
  Transmission Date: 20190205
  Serious: No
  Sender: FDA-Public Use
  Company Number: US-009507513-1810USA013957

PATIENT
  Sex: Female
  Weight: 68.03 kg

DRUGS (1)
  1. NEXPLANON [Suspect]
     Active Substance: ETONOGESTREL
     Indication: CONTRACEPTION
     Dosage: 1 DOSAGE FORM
     Route: 059

REACTIONS (3)
  - Biliary colic [Not Recovered/Not Resolved]
  - Abdominal pain lower [Not Recovered/Not Resolved]
  - Amenorrhoea [Not Recovered/Not Resolved]

NARRATIVE: CASE EVENT DATE: 2015
